FAERS Safety Report 21536318 (Version 1)
Quarter: 2022Q4

REPORT INFORMATION
  Report Type: Spontaneous
  Country: US (occurrence: US)
  Receive Date: 20221101
  Receipt Date: 20221101
  Transmission Date: 20230112
  Serious: No
  Sender: FDA-Public Use
  Company Number: US-TEVA-2022-US-2817701

PATIENT
  Age: 78 Year
  Sex: Female

DRUGS (1)
  1. DOXEPIN [Suspect]
     Active Substance: DOXEPIN
     Indication: Sleep disorder
     Dosage: 6 MILLIGRAM DAILY; ONCE AT BEDTIME
     Route: 065
     Dates: start: 202210, end: 202210

REACTIONS (1)
  - Abnormal dreams [Recovered/Resolved]

NARRATIVE: CASE EVENT DATE: 20221001
